FAERS Safety Report 10813495 (Version 4)
Quarter: 2015Q2

REPORT INFORMATION
  Report Type: Spontaneous
  Country: US (occurrence: US)
  Receive Date: 20150218
  Receipt Date: 20150603
  Transmission Date: 20150821
  Serious: No
  Sender: FDA-Public Use
  Company Number: US-PFIZER INC-2014317278

PATIENT
  Age: 71 Year
  Sex: Male
  Weight: 84 kg

DRUGS (18)
  1. OMEPRAZOLE. [Concomitant]
     Active Substance: OMEPRAZOLE
     Indication: DYSPEPSIA
     Dosage: 20 MG, DAILY
  2. LYRICA [Concomitant]
     Active Substance: PREGABALIN
     Indication: PAIN
     Dosage: 50 MG,(TAKE 1 TABLET PO QHS PRN)
     Route: 048
  3. SEROQUEL [Concomitant]
     Active Substance: QUETIAPINE FUMARATE
     Dosage: 50 MG, UNK
  4. VIAGRA [Suspect]
     Active Substance: SILDENAFIL CITRATE
     Indication: BLOOD PRESSURE
     Dosage: 100 MG, AS NEEDED
     Route: 048
     Dates: start: 2008
  5. LISINOPRIL. [Concomitant]
     Active Substance: LISINOPRIL
     Indication: HYPERTENSION
     Dosage: 10 MG, DAILY
  6. VITAMIN D3 [Concomitant]
     Active Substance: CHOLECALCIFEROL
     Indication: VITAMIN D DEFICIENCY
     Dosage: 800 IU, 1X/DAY  (400 UNIT, 2 TABLETS)
     Route: 048
  7. CALCIUM + VIT D [Concomitant]
     Active Substance: CALCIUM\VITAMIN D
     Dosage: 1X/DAY (CALCIUM 500 MG, VITAMIN D 125 IU)
  8. TRAMADOL HCL [Concomitant]
     Active Substance: TRAMADOL HYDROCHLORIDE
     Indication: PAIN
     Dosage: 50 MG, UNK (TAKE ONE TAB BID PM )
  9. HYDROCHLOROTHIAZIDE. [Concomitant]
     Active Substance: HYDROCHLOROTHIAZIDE
     Indication: HYPERTENSION
     Dosage: 25 MG, DAILY
  10. KLOR-CON [Concomitant]
     Active Substance: POTASSIUM CHLORIDE
     Indication: HYPERTENSION
     Dosage: 20 MEQ, DAILY
  11. VIAGRA [Suspect]
     Active Substance: SILDENAFIL CITRATE
     Indication: PENIS DISORDER
     Dosage: 100 MG, UNK (TAKE ONE TAB PO 1 HOUR PRIOR TO SEXUAL ACTIVITY)
     Route: 048
  12. TERAZOSIN HYDROCHLORIDE. [Concomitant]
     Active Substance: TERAZOSIN HYDROCHLORIDE
     Indication: HYPERTENSION
     Dosage: 10 MG, (TAKE 2 CAPSULES)1X/DAY
     Route: 048
  13. QUETIAPINE FUMARATE. [Concomitant]
     Active Substance: QUETIAPINE FUMARATE
     Dosage: 300 MG, DAILY (BEDTIME)
  14. VIMOVO [Concomitant]
     Active Substance: ESOMEPRAZOLE MAGNESIUM\NAPROXEN
     Dosage: 500-20MG
  15. ABILIFY [Concomitant]
     Active Substance: ARIPIPRAZOLE
     Dosage: 2 MG, DAILY (AT BEDTIME)
  16. VIAGRA [Suspect]
     Active Substance: SILDENAFIL CITRATE
     Indication: ERECTILE DYSFUNCTION
     Dosage: 100 MG, 1X/DAY, PRN (30 MINUTES PRIOR TO SEXUAL INTERCOURSE)
     Route: 048
     Dates: start: 20150303
  17. ATENOLOL. [Concomitant]
     Active Substance: ATENOLOL
     Indication: HYPERTENSION
     Dosage: 25 MG, DAILY
  18. POTASSIUM CHLORIDE. [Concomitant]
     Active Substance: POTASSIUM CHLORIDE
     Indication: HYPERTENSION
     Dosage: 20 MEQ, 1X/DAY (TAKE 1 TABLET POTASSIUM CHLORIDE 20MEQ PO QD-SUBSTITUTE POWDER WITH TABLETS)
     Route: 048

REACTIONS (2)
  - Suspected counterfeit product [Unknown]
  - Drug ineffective [Unknown]

NARRATIVE: CASE EVENT DATE: 201501
